FAERS Safety Report 20646867 (Version 5)
Quarter: 2022Q3

REPORT INFORMATION
  Report Type: Spontaneous
  Country: US (occurrence: US)
  Receive Date: 20220329
  Receipt Date: 20220817
  Transmission Date: 20221026
  Serious: Yes (Hospitalization, Other)
  Sender: FDA-Public Use
  Company Number: US-LUPIN PHARMACEUTICALS INC.-2022-04300

PATIENT
  Age: 55 Year
  Sex: Male
  Weight: 72 kg

DRUGS (13)
  1. QUETIAPINE FUMARATE [Suspect]
     Active Substance: QUETIAPINE FUMARATE
     Indication: Agitation
     Dosage: 25 MILLIGRAM, BID
     Route: 048
  2. CLONIDINE [Suspect]
     Active Substance: CLONIDINE
     Indication: Agitation
     Dosage: 0.1 MG, BID
     Route: 065
  3. CLONIDINE [Suspect]
     Active Substance: CLONIDINE
     Dosage: 0.2 MG, BID
     Route: 065
  4. OLANZAPINE [Suspect]
     Active Substance: OLANZAPINE
     Indication: Agitation
     Dosage: 2.5 MILLIGRAM, BID
     Route: 048
  5. GALANTAMINE [Suspect]
     Active Substance: GALANTAMINE
     Indication: Agitation
     Dosage: UNK
     Route: 065
     Dates: start: 2020
  6. LORAZEPAM [Suspect]
     Active Substance: LORAZEPAM
     Indication: Agitation
     Dosage: UNK
     Route: 065
     Dates: start: 2020
  7. MIRTAZAPINE [Suspect]
     Active Substance: MIRTAZAPINE
     Indication: Agitation
     Dosage: UNK
     Route: 065
  8. KETAMINE [Suspect]
     Active Substance: KETAMINE
     Indication: Agitation
     Dosage: UNK
     Route: 065
  9. CITALOPRAM [Suspect]
     Active Substance: CITALOPRAM HYDROBROMIDE
     Indication: Agitation
     Dosage: UNK
     Route: 065
  10. PRAZOSIN [Suspect]
     Active Substance: PRAZOSIN
     Indication: Agitation
     Dosage: 1 MG, QD (NIGHTLY; AN INCREASE IN THE DOSE EVERY 2-3 DAYS UNTIL REACHING A TARGET DOSE OF 6 MG NIGHT
     Route: 065
  11. TRAZODONE [Suspect]
     Active Substance: TRAZODONE HYDROCHLORIDE
     Indication: Agitation
     Dosage: UNK
     Route: 065
  12. DEXTROMETHORPHAN [Concomitant]
     Active Substance: DEXTROMETHORPHAN
     Indication: Agitation
     Dosage: UNK
     Route: 065
  13. QUINIDINE [Concomitant]
     Active Substance: QUINIDINE
     Indication: Agitation
     Dosage: UNK
     Route: 065

REACTIONS (6)
  - Aggression [Recovering/Resolving]
  - Akathisia [Unknown]
  - Paradoxical drug reaction [Recovering/Resolving]
  - Drug ineffective for unapproved indication [Unknown]
  - Hypotension [Unknown]
  - Off label use [Unknown]
